FAERS Safety Report 11129617 (Version 1)
Quarter: 2015Q2

REPORT INFORMATION
  Report Type: Spontaneous
  Country: GB (occurrence: GB)
  Receive Date: 20150521
  Receipt Date: 20150521
  Transmission Date: 20150821
  Serious: Yes (Other)
  Sender: FDA-Public Use
  Company Number: GB-RECKITT BENCKISER PHARMACEUTICAL, INC-RB-079415-2015

PATIENT
  Age: 30 Year
  Sex: Male

DRUGS (4)
  1. BUPRENORPHINE [Suspect]
     Active Substance: BUPRENORPHINE
     Indication: PRODUCT USED FOR UNKNOWN INDICATION
     Dosage: 4 MG UNK
     Route: 060
     Dates: start: 20150401, end: 20150501
  2. ARIPIPRAZOLE. [Concomitant]
     Active Substance: ARIPIPRAZOLE
     Indication: PRODUCT USED FOR UNKNOWN INDICATION
     Dosage: UNK
     Route: 065
  3. OLANZAPINE. [Concomitant]
     Active Substance: OLANZAPINE
     Indication: PRODUCT USED FOR UNKNOWN INDICATION
     Dosage: UNK
     Route: 065
  4. SERTRALINE [Concomitant]
     Active Substance: SERTRALINE HYDROCHLORIDE
     Indication: PRODUCT USED FOR UNKNOWN INDICATION
     Dosage: UNK
     Route: 065

REACTIONS (7)
  - Paranoia [Recovered/Resolved]
  - Migraine [Recovered/Resolved]
  - Suicidal ideation [Recovered/Resolved]
  - Vomiting [Recovered/Resolved]
  - Reaction to drug excipients [Unknown]
  - Hallucination, auditory [Recovered/Resolved]
  - Stress [Recovered/Resolved]

NARRATIVE: CASE EVENT DATE: 20150401
